FAERS Safety Report 20193691 (Version 1)
Quarter: 2021Q4

REPORT INFORMATION
  Report Type: Spontaneous
  Country: US (occurrence: US)
  Receive Date: 20211216
  Receipt Date: 20211216
  Transmission Date: 20220303
  Serious: No
  Sender: FDA-Public Use
  Company Number: US-ELI_LILLY_AND_COMPANY-US202112003169

PATIENT
  Age: 36 Year
  Sex: Female
  Weight: 119.27 kg

DRUGS (2)
  1. ETESEVIMAB [Suspect]
     Active Substance: ETESEVIMAB
     Indication: COVID-19
     Dosage: UNK, SINGLE
     Route: 042
     Dates: start: 20211206, end: 20211206
  2. BAMLANIVIMAB [Suspect]
     Active Substance: BAMLANIVIMAB
     Indication: COVID-19
     Dosage: UNK, SINGLE
     Route: 042
     Dates: start: 20211206, end: 20211206

REACTIONS (5)
  - Headache [Unknown]
  - Flushing [Unknown]
  - Nausea [Unknown]
  - Dyspnoea [Unknown]
  - Infusion related reaction [Unknown]

NARRATIVE: CASE EVENT DATE: 20211206
